FAERS Safety Report 4509301-X (Version None)
Quarter: 2004Q4

REPORT INFORMATION
  Report Type: 
  Country: None (occurrence: None)
  Receive Date: 20041025
  Receipt Date: 20040810
  Transmission Date: 20050328
  Serious: Yes (Other)
  Sender: FDA-Public Use
  Company Number: US-JNJFOC-20040701825

PATIENT
  Age: 79 Year
  Sex: Female
  Weight: 62.5964 kg

DRUGS (5)
  1. REMICADE [Suspect]
     Indication: RHEUMATOID ARTHRITIS
     Dosage: HAS HAD 5 TREATMENTS.  STARTED INFLIXIMAB ABOUT 6 TO 8 MONTHS AGO
  2. METHOTREXATE [Concomitant]
  3. PREDNISONE [Concomitant]
  4. FOLIC ACID [Concomitant]
  5. LIPITOR [Concomitant]

REACTIONS (1)
  - PLEURAL EFFUSION [None]
